FAERS Safety Report 8937756 (Version 2)
Quarter: 2013Q1

REPORT INFORMATION
  Report Type: Report from Study
  Country: US (occurrence: US)
  Receive Date: 20121130
  Receipt Date: 20130104
  Transmission Date: 20140127
  Serious: Yes (Death)
  Sender: FDA-Public Use
  Company Number: US-ABBOTT-12P-163-1013488-00

PATIENT
  Sex: Male
  Weight: 83.99 kg

DRUGS (3)
  1. HUMIRA [Suspect]
     Indication: PSORIASIS
     Route: 058
     Dates: start: 20110315, end: 201206
  2. ATENOLOL [Suspect]
     Indication: HYPERTROPHIC CARDIOMYOPATHY
     Dates: start: 2003, end: 2012
  3. STELARA [Suspect]
     Indication: PRODUCT USED FOR UNKNOWN INDICATION
     Dates: start: 20120614

REACTIONS (3)
  - Psoriasis [Fatal]
  - No therapeutic response [Fatal]
  - Cardiomyopathy [Fatal]
